FAERS Safety Report 20102449 (Version 2)
Quarter: 2021Q4

REPORT INFORMATION
  Report Type: Spontaneous
  Country: US (occurrence: US)
  Receive Date: 20211123
  Receipt Date: 20211130
  Transmission Date: 20220303
  Serious: No
  Sender: FDA-Public Use
  Company Number: US-TEVA-2021-US-1979039

PATIENT
  Age: 75 Year
  Sex: Female
  Weight: 52.62 kg

DRUGS (5)
  1. PROAIR HFA [Suspect]
     Active Substance: ALBUTEROL SULFATE
     Indication: Asthma
     Dosage: SINCE 5 YEARS, THE PATIENT TOOK THE PROAIR HFA
     Route: 065
     Dates: end: 20211112
  2. PROAIR HFA [Suspect]
     Active Substance: ALBUTEROL SULFATE
     Route: 065
  3. ALBUTEROL SULFATE [Suspect]
     Active Substance: ALBUTEROL SULFATE
     Indication: Asthma
     Route: 065
  4. ALBUTEROL SULFATE [Suspect]
     Active Substance: ALBUTEROL SULFATE
  5. VENTOLIN [Concomitant]
     Active Substance: ALBUTEROL SULFATE

REACTIONS (8)
  - Hypersensitivity [Unknown]
  - Feeling abnormal [Unknown]
  - Lung disorder [Unknown]
  - Dizziness [Unknown]
  - Adverse event [Unknown]
  - Product odour abnormal [Unknown]
  - Product taste abnormal [Unknown]
  - Pneumonitis [Unknown]

NARRATIVE: CASE EVENT DATE: 20210101
